FAERS Safety Report 17605573 (Version 4)
Quarter: 2021Q3

REPORT INFORMATION
  Report Type: Report from Study
  Country: FR (occurrence: FR)
  Receive Date: 20200331
  Receipt Date: 20210722
  Transmission Date: 20211014
  Serious: Yes (Hospitalization, Other)
  Sender: FDA-Public Use
  Company Number: PHHY2019FR189401

PATIENT
  Age: 34 Year
  Sex: Female
  Weight: 54 kg

DRUGS (3)
  1. GILENYA [Suspect]
     Active Substance: FINGOLIMOD HYDROCHLORIDE
     Dosage: 0.5 MG, QD
     Route: 048
     Dates: start: 20190524
  2. TYSABRI [Suspect]
     Active Substance: NATALIZUMAB
     Indication: MULTIPLE SCLEROSIS
     Dosage: 300 MG
     Route: 042
     Dates: start: 20181121, end: 20190416
  3. GILENYA [Suspect]
     Active Substance: FINGOLIMOD HYDROCHLORIDE
     Indication: MULTIPLE SCLEROSIS
     Dosage: 0.5 MG, QD
     Route: 048
     Dates: start: 20150615, end: 20180915

REACTIONS (5)
  - Cholelithiasis [Recovered/Resolved]
  - Maternal exposure during pregnancy [Unknown]
  - Premature delivery [Recovered/Resolved]
  - Cholangitis [Recovered/Resolved]
  - Cholestasis of pregnancy [Unknown]

NARRATIVE: CASE EVENT DATE: 201903
